FAERS Safety Report 10165951 (Version 1)
Quarter: 2014Q2

REPORT INFORMATION
  Report Type: Spontaneous
  Country: IT (occurrence: IT)
  Receive Date: 20140510
  Receipt Date: 20140510
  Transmission Date: 20141212
  Serious: Yes (Hospitalization)
  Sender: FDA-Public Use
  Company Number: IT-MYLANLABS-2014S1010260

PATIENT
  Age: 52 Year
  Sex: Female

DRUGS (4)
  1. IBUPROFEN [Suspect]
     Indication: TENDONITIS
     Dosage: 800 MG DAILY
     Route: 048
     Dates: start: 20140310, end: 20140311
  2. LANSOPRAZOLE [Suspect]
     Indication: GASTROOESOPHAGEAL REFLUX DISEASE
     Dosage: 30 MG TOTAL
     Route: 048
     Dates: start: 20140310, end: 20140310
  3. AMOXICILLIN + CLAVULANIC ACID [Suspect]
     Indication: INFLUENZA
     Dosage: 2 DF DAILY
     Route: 048
     Dates: start: 20140308, end: 20140311
  4. OMEPRAZEN /00661201/ [Concomitant]
     Indication: PRODUCT USED FOR UNKNOWN INDICATION
     Route: 048
     Dates: end: 20140309

REACTIONS (5)
  - Erythema [Recovered/Resolved]
  - Pruritus [Recovered/Resolved]
  - Rash generalised [Recovered/Resolved]
  - Adverse drug reaction [Recovered/Resolved]
  - Urticaria [Recovered/Resolved]
